FAERS Safety Report 5040778-X (Version None)
Quarter: 2006Q2

REPORT INFORMATION
  Report Type: 
  Country: None (occurrence: None)
  Receive Date: 20060630
  Receipt Date: 20060630
  Transmission Date: 20061013
  Serious: Yes (Death)
  Sender: FDA-Public Use
  Company Number: None

PATIENT
  Sex: Male

DRUGS (9)
  1. SARGRAMOSTIM      250 MICROGRAMS     BERLEX LABS [Suspect]
     Dosage: 250 MICROGRAMS    2 INDIVIDUAL DOSES   IM
     Route: 030
     Dates: start: 20050908, end: 20051004
  2. HEPATITIS B VACCINE [Concomitant]
  3. VALTREX [Concomitant]
  4. TRIZIVIR [Concomitant]
  5. PENTAMIDINE ISETHIONATE [Concomitant]
  6. ZITHROMAX [Concomitant]
  7. TRAZODONE HCL [Concomitant]
  8. ZYRTEC [Concomitant]
  9. SPORANOX [Concomitant]

REACTIONS (6)
  - BACTERAEMIA [None]
  - NEUTROPENIA [None]
  - PNEUMONIA [None]
  - PSEUDOMONAS INFECTION [None]
  - RESPIRATORY FAILURE [None]
  - SEPSIS [None]
